FAERS Safety Report 20599020 (Version 1)
Quarter: 2022Q1

REPORT INFORMATION
  Report Type: Report from Study
  Country: CA (occurrence: CA)
  Receive Date: 20220315
  Receipt Date: 20220315
  Transmission Date: 20220423
  Serious: Yes (Death)
  Sender: FDA-Public Use
  Company Number: CA-BEH-2022143234

PATIENT
  Age: 2 Year
  Sex: Male
  Weight: 9.4 kg

DRUGS (1)
  1. HIZENTRA [Suspect]
     Active Substance: HUMAN IMMUNOGLOBULIN G
     Indication: Primary immunodeficiency syndrome
     Dosage: 1 GRAM, QW
     Route: 050
     Dates: start: 20200709

REACTIONS (1)
  - Death [Fatal]

NARRATIVE: CASE EVENT DATE: 20220306
